FAERS Safety Report 24547686 (Version 3)
Quarter: 2024Q4

REPORT INFORMATION
  Report Type: Spontaneous
  Country: FR (occurrence: FR)
  Receive Date: 20241025
  Receipt Date: 20241126
  Transmission Date: 20250115
  Serious: Yes (Hospitalization, Other)
  Sender: CELLTRION
  Company Number: None

PATIENT

DRUGS (9)
  1. INFLIXIMAB [Suspect]
     Active Substance: INFLIXIMAB
     Indication: Rheumatoid arthritis
     Dosage: 400 MG, EVERY 8 WEEKS
     Route: 058
     Dates: start: 20200710
  2. METHOTREXATE SODIUM [Suspect]
     Active Substance: METHOTREXATE SODIUM
     Indication: Rheumatoid arthritis
     Dosage: 1 DF, 1/WEEK
     Route: 058
     Dates: start: 20200710
  3. ENBREL [Suspect]
     Active Substance: ETANERCEPT
     Indication: Rheumatoid arthritis
     Dosage: 1 DF, EVERY 2 WEEKS
     Route: 058
     Dates: start: 2009, end: 2013
  4. HUMIRA [Suspect]
     Active Substance: ADALIMUMAB
     Indication: Rheumatoid arthritis
     Dosage: 1 DF, EVERY 2 WEEKS
     Route: 058
     Dates: start: 2013
  5. SIMPONI [Suspect]
     Active Substance: GOLIMUMAB
     Indication: Rheumatoid arthritis
     Dosage: 1 DF, EVERY 1 MONTH
     Route: 058
     Dates: start: 2013, end: 201904
  6. ETANERCEPT [Suspect]
     Active Substance: ETANERCEPT
     Indication: Rheumatoid arthritis
     Dosage: 1 DF, 1/WEEK
     Route: 058
     Dates: start: 201911, end: 202007
  7. FOLIC ACID [Concomitant]
     Active Substance: FOLIC ACID
     Dosage: 10 MG, 1/WEEK
     Route: 048
     Dates: start: 20200710
  8. KARDEGIC [Concomitant]
     Active Substance: ASPIRIN DL-LYSINE
     Dosage: 1 DF, QD
     Route: 048
  9. SIMVASTATIN [Concomitant]
     Active Substance: SIMVASTATIN
     Dosage: 20 MG, QD
     Route: 048

REACTIONS (3)
  - Lentigo maligna [Recovered/Resolved with Sequelae]
  - Basal cell carcinoma [Not Recovered/Not Resolved]
  - Intentional product use issue [Unknown]

NARRATIVE: CASE EVENT DATE: 20240214
